FAERS Safety Report 15733597 (Version 2)
Quarter: 2018Q4

REPORT INFORMATION
  Report Type: Spontaneous
  Country: NL (occurrence: NL)
  Receive Date: 20181218
  Receipt Date: 20181220
  Transmission Date: 20190205
  Serious: Yes (Other)
  Sender: FDA-Public Use
  Company Number: NL-TEVA-2018-NL-987103

PATIENT
  Age: 36 Year
  Sex: Female
  Weight: 78 kg

DRUGS (1)
  1. DOXYCYCLINE TABLET, 100 MG (MILLIGRAM) [Suspect]
     Active Substance: DOXYCYCLINE
     Indication: PERIORAL DERMATITIS
     Dosage: 100 MILLIGRAM DAILY;
     Dates: start: 20181023, end: 20181026

REACTIONS (1)
  - Acute generalised exanthematous pustulosis [Recovered/Resolved]

NARRATIVE: CASE EVENT DATE: 20181024
